FAERS Safety Report 7394371-4 (Version None)
Quarter: 2011Q2

REPORT INFORMATION
  Report Type: 
  Country: None (occurrence: None)
  Receive Date: 20110405
  Receipt Date: 20110323
  Transmission Date: 20111010
  Serious: Yes (Other)
  Sender: FDA-Public Use
  Company Number: US-ELI_LILLY_AND_COMPANY-US201101004864

PATIENT
  Sex: Female

DRUGS (1)
  1. FORTEO [Suspect]
     Dosage: 20 UG, DAILY (1/D)
     Route: 058
     Dates: start: 20090511

REACTIONS (6)
  - ANAESTHETIC COMPLICATION [None]
  - OROPHARYNGEAL PAIN [None]
  - FALL [None]
  - PERIORBITAL HAEMATOMA [None]
  - SHOULDER ARTHROPLASTY [None]
  - HALLUCINATION [None]
